FAERS Safety Report 9464306 (Version 2)
Quarter: 2013Q3

REPORT INFORMATION
  Report Type: Spontaneous
  Country: FR (occurrence: FR)
  Receive Date: 20130819
  Receipt Date: 20130920
  Transmission Date: 20140515
  Serious: Yes (Other)
  Sender: FDA-Public Use
  Company Number: FR-PFIZER INC-2013228353

PATIENT
  Age: 55 Year
  Sex: Female

DRUGS (35)
  1. LEDERFOLINE [Suspect]
     Dosage: 25 MG, 1X/DAY
     Route: 048
     Dates: start: 20130621, end: 20130725
  2. VANCOMYCIN [Suspect]
     Dosage: 2 G, 1X/DAY
     Route: 042
     Dates: start: 20130718, end: 20130722
  3. PIPERACILLIN/TAZOBACTAM [Suspect]
     Dosage: 4 G, 3X/DAY
     Route: 042
     Dates: start: 20130712, end: 20130722
  4. HEPARIN SODIUM [Suspect]
     Dosage: 3000 IU, 2X/DAY
     Route: 058
     Dates: start: 20130621, end: 20130725
  5. VINCRISTINE TVC [Suspect]
     Dosage: 2 MG, CYCLIC
     Route: 042
     Dates: start: 20130628, end: 20130719
  6. VALACICLOVIR ARROW [Suspect]
     Dosage: 500 MG, 1X/DAY
     Route: 048
     Dates: start: 20130621, end: 20130624
  7. KIDROLASE [Suspect]
     Dosage: 10,600 IU/L PER CYCLE
     Route: 042
     Dates: start: 20130705, end: 20130723
  8. NUTRIFLEX [Suspect]
     Dosage: 1875 ML, 1X/DAY
     Route: 042
     Dates: start: 20130717, end: 20130724
  9. METHYLPREDNISOLONE MYLAN [Suspect]
     Dosage: 30 MG, 2X/DAY
     Route: 042
     Dates: start: 20130621, end: 20130628
  10. UROMITEXAN [Suspect]
     Dosage: 400 MG, CYCLIC
     Route: 042
     Dates: start: 20130628, end: 20130712
  11. ENDOXAN [Suspect]
     Dosage: 1300 MG, CYCLIC
     Route: 042
     Dates: start: 20130628, end: 20130712
  12. ACLOTINE [Suspect]
     Dosage: 3000 IU, 1X/DAY
     Route: 042
     Dates: start: 20130705, end: 20130723
  13. CERUBIDINE [Suspect]
     Dosage: 50 MG, CYCLIC
     Route: 042
     Dates: start: 20130628, end: 20130713
  14. LEXOMIL [Suspect]
     Dosage: 1 DF (TABLET), 1X/DAY
     Route: 048
     Dates: start: 20130621, end: 20130707
  15. LEXOMIL [Suspect]
     Dosage: 0.5 DF (1/2 TABLET)
     Route: 048
     Dates: end: 20130719
  16. GENTAMICIN ^PANPHARMA^ [Suspect]
     Dosage: 180 MG, 1X/DAY
     Route: 042
     Dates: start: 20130712
  17. GENTAMICIN ^PANPHARMA^ [Suspect]
     Dosage: 300 MG, 1X/DAY
     Route: 042
     Dates: start: 20130713, end: 20130714
  18. TRANXENE [Suspect]
     Dosage: 20 MG, 1X/DAY LYOPHILISATE FAND SOLUTION FOR PARENTERAL USE
     Route: 042
     Dates: start: 20130621, end: 20130707
  19. ZOPICLONE ARROW [Suspect]
     Dosage: 3.75 MG, 1X/DAY
     Route: 048
     Dates: start: 20130723, end: 20130725
  20. FASTURTEC [Suspect]
     Dosage: 15 MG, 1X/DAY
     Route: 042
     Dates: start: 20130621, end: 20130627
  21. ZYLORIC [Suspect]
     Dosage: 300 MG, 1X/DAY
     Route: 048
     Dates: start: 20130627, end: 20130701
  22. ZOPHREN [Suspect]
     Dosage: 3 DF, CYCLIC
     Route: 042
     Dates: start: 20130628, end: 20130714
  23. DUPHALAC [Suspect]
     Dosage: ONE SACHET DAILY PER OS
     Route: 048
     Dates: start: 20130629, end: 20130629
  24. MOVICOL [Suspect]
     Dosage: 1 DF, SINGLE, POWDER FOR ORAL SOLUTION IN SACHET
     Route: 048
     Dates: start: 20130701, end: 20130701
  25. FUROSEMIDE RENAUDIN [Suspect]
     Dosage: 20 MG, 1X/DAY
     Route: 042
     Dates: start: 20130701, end: 20130701
  26. FUROSEMIDE RENAUDIN [Suspect]
     Dosage: 20 MG, 1X/DAY
     Route: 042
     Dates: start: 20130705, end: 20130705
  27. FUROSEMIDE RENAUDIN [Suspect]
     Dosage: 20 MG, 1X/DAY
     Route: 042
     Dates: start: 20130719, end: 20130719
  28. PARACETAMOL BBM [Suspect]
     Dosage: 1 G, 1X/DAY
     Route: 042
     Dates: start: 20130712, end: 20130717
  29. GAVISCON [Suspect]
     Dosage: 1 DF, SINGLE, SUSPENSION
     Route: 048
     Dates: start: 20130712, end: 20130712
  30. GRANOCYTE [Suspect]
     Dosage: 1 DF 1X/DAY,(34X10^6) POWDER AND SOLVENT  IN PRE-FILLED SYRINGE FOR INJECTABLE SOLUTION OR INFUSION
     Route: 058
     Dates: start: 20130717, end: 20130723
  31. INEXIUM [Suspect]
     Dosage: 15 MG, 1X/DAY, ENTERIC-COATED GRANULES FOR SOLUTION IN SACHET-DOSE
     Route: 048
     Dates: start: 20130621, end: 20130624
  32. ACUPAN [Suspect]
     Dosage: 1 DF, 1X/DAY
     Route: 042
     Dates: start: 20130621, end: 20130725
  33. VENLAFAXINE ARROW LP [Suspect]
     Dosage: 37.5 MG, 1X/DAY
     Route: 048
     Dates: start: 20130622, end: 20130725
  34. PRIMPERAN [Suspect]
     Dosage: 3 DF, 1X/DAY (30MG)
     Route: 042
     Dates: start: 20130711, end: 20130725
  35. BACTRIM FORTE [Suspect]
     Dosage: 1 DF, 3X/DAY
     Route: 048
     Dates: start: 20130627

REACTIONS (1)
  - Hypertriglyceridaemia [Recovering/Resolving]
